FAERS Safety Report 19628071 (Version 1)
Quarter: 2021Q3

REPORT INFORMATION
  Report Type: Spontaneous
  Country: GB (occurrence: GB)
  Receive Date: 20210729
  Receipt Date: 20210729
  Transmission Date: 20211014
  Serious: Yes (Other)
  Sender: FDA-Public Use
  Company Number: GB-VERTEX PHARMACEUTICALS-2021-007629

PATIENT
  Sex: Female

DRUGS (2)
  1. KALYDECO [Suspect]
     Active Substance: IVACAFTOR
     Indication: CYSTIC FIBROSIS
     Dosage: 150 MG ONCE IN EVENING
     Route: 048
     Dates: start: 2019, end: 202009
  2. SYMKEVI [Suspect]
     Active Substance: IVACAFTOR\TEZACAFTOR
     Indication: CYSTIC FIBROSIS
     Dosage: 100MG TEZACAFTOR/150MG IVACAFTOR, QD
     Route: 048
     Dates: start: 2019, end: 202009

REACTIONS (3)
  - Cognitive disorder [Unknown]
  - Breast cancer female [Not Recovered/Not Resolved]
  - Underweight [Unknown]

NARRATIVE: CASE EVENT DATE: 20200515
